FAERS Safety Report 20137385 (Version 1)
Quarter: 2021Q4

REPORT INFORMATION
  Report Type: Report from Study
  Country: BR (occurrence: BR)
  Receive Date: 20211201
  Receipt Date: 20211201
  Transmission Date: 20220303
  Serious: Yes (Other)
  Sender: FDA-Public Use
  Company Number: BR-JNJFOC-20211152596

PATIENT
  Age: 5 Decade
  Sex: Female
  Weight: 89 kg

DRUGS (1)
  1. REMICADE [Suspect]
     Active Substance: INFLIXIMAB
     Indication: Ankylosing spondylitis
     Route: 042
     Dates: start: 20190121, end: 201904

REACTIONS (1)
  - Tuberculosis of central nervous system [Recovered/Resolved]

NARRATIVE: CASE EVENT DATE: 20190101
